FAERS Safety Report 4920222-0 (Version None)
Quarter: 2006Q1

REPORT INFORMATION
  Report Type: 
  Country: None (occurrence: None)
  Receive Date: 20060216
  Receipt Date: 20060131
  Transmission Date: 20060701
  Serious: Yes (Hospitalization)
  Sender: FDA-Public Use
  Company Number: 2005JP002129

PATIENT
  Age: 34 Year
  Sex: Male

DRUGS (3)
  1. PROGRAF [Suspect]
     Dosage: 2.4 MG, IV NOS
     Route: 042
     Dates: start: 20051019, end: 20051027
  2. OMEPRAZOLE [Concomitant]
  3. DENOSINE ^TANABE^ (GANCICLOVIR) [Concomitant]

REACTIONS (1)
  - NYSTAGMUS [None]
